FAERS Safety Report 9587396 (Version 1)
Quarter: 2013Q4

REPORT INFORMATION
  Report Type: Report from Study
  Country: MX (occurrence: MX)
  Receive Date: 20131003
  Receipt Date: 20131003
  Transmission Date: 20140711
  Serious: Yes (Disabling)
  Sender: FDA-Public Use
  Company Number: MX-ROCHE-1283821

PATIENT
  Age: 62 Year
  Sex: Female
  Weight: 48 kg

DRUGS (1)
  1. XELODA [Suspect]
     Indication: COLORECTAL CANCER METASTATIC
     Dosage: DOSE FOR 14 DAYS AND 7 DAYS RESTING, CYCLE:1
     Route: 048
     Dates: start: 201307

REACTIONS (2)
  - Anorectal discomfort [Recovered/Resolved]
  - Decreased appetite [Recovering/Resolving]
